FAERS Safety Report 23897272 (Version 2)
Quarter: 2024Q3

REPORT INFORMATION
  Report Type: Report from Study
  Country: CA (occurrence: CA)
  Receive Date: 20240524
  Receipt Date: 20240701
  Transmission Date: 20241016
  Serious: Yes (Other)
  Sender: JOHNSON AND JOHNSON
  Company Number: CA-JNJFOC-20231062052

PATIENT
  Sex: Female

DRUGS (1)
  1. REMICADE [Suspect]
     Active Substance: INFLIXIMAB
     Indication: Crohn^s disease
     Route: 041
     Dates: start: 20230327

REACTIONS (3)
  - Hepatitis B [Not Recovered/Not Resolved]
  - Liver function test increased [Unknown]
  - Hordeolum [Unknown]

NARRATIVE: CASE EVENT DATE: 20230101
